FAERS Safety Report 10551444 (Version 1)
Quarter: 2014Q4

REPORT INFORMATION
  Report Type: Spontaneous
  Country: IT (occurrence: None)
  Receive Date: 20141027
  Receipt Date: 20141027
  Transmission Date: 20150529
  Serious: Yes (Life-Threatening)
  Sender: FDA-Public Use
  Company Number: FK201404432

PATIENT
  Age: 56 Year
  Sex: Female

DRUGS (1)
  1. OXALIPLATIN (MANUFACTURER UNKNOWN) (OXALIPLATIN) (OXALIPLATIN) [Suspect]
     Active Substance: OXALIPLATIN
     Indication: PRODUCT USED FOR UNKNOWN INDICATION
     Dates: start: 20140603

REACTIONS (6)
  - Blood pressure increased [None]
  - Loss of consciousness [None]
  - Infusion related reaction [None]
  - Urticaria papular [None]
  - Extrasystoles [None]
  - Tremor [None]

NARRATIVE: CASE EVENT DATE: 20140624
